FAERS Safety Report 19056495 (Version 1)
Quarter: 2021Q1

REPORT INFORMATION
  Report Type: Spontaneous
  Country: US (occurrence: US)
  Receive Date: 20210324
  Receipt Date: 20210324
  Transmission Date: 20210420
  Serious: Yes (Death)
  Sender: FDA-Public Use
  Company Number: None

PATIENT
  Age: 59 Year
  Sex: Female

DRUGS (2)
  1. TACROLIMUS. [Suspect]
     Active Substance: TACROLIMUS
     Indication: RENAL TRANSPLANT
     Dosage: ?          OTHER DOSE:0.5MG, 1MG;OTHER FREQUENCY:2QAM, 1QPM;?
     Route: 048
     Dates: start: 20130915, end: 20210324
  2. MYFORTIC [Suspect]
     Active Substance: MYCOPHENOLATE SODIUM
     Indication: RENAL TRANSPLANT
     Dosage: ?          OTHER DOSE:180MG, 360MG;OTHER FREQUENCY:1Q12, 1Q12;?
     Route: 048
     Dates: start: 20190915, end: 20210324

REACTIONS (1)
  - Death [None]

NARRATIVE: CASE EVENT DATE: 20210324
